FAERS Safety Report 13040506 (Version 1)
Quarter: 2016Q4

REPORT INFORMATION
  Report Type: Spontaneous
  Country: US (occurrence: US)
  Receive Date: 20161219
  Receipt Date: 20161219
  Transmission Date: 20170207
  Serious: No
  Sender: FDA-Public Use
  Company Number: None

PATIENT
  Age: 58 Year
  Sex: Female
  Weight: 108 kg

DRUGS (12)
  1. LEVOTHYROXINE. [Concomitant]
     Active Substance: LEVOTHYROXINE
  2. MAGNESIUM [Concomitant]
     Active Substance: MAGNESIUM
  3. COQ10 [Concomitant]
     Active Substance: UBIDECARENONE
  4. VITAMIN C [Concomitant]
     Active Substance: ASCORBIC ACID
  5. GLIPIZIDE. [Concomitant]
     Active Substance: GLIPIZIDE
  6. PROBIOTIC [Concomitant]
     Active Substance: PROBIOTICS NOS
  7. TANZEUM [Suspect]
     Active Substance: ALBIGLUTIDE
     Indication: TYPE 2 DIABETES MELLITUS
     Dosage: ?          OTHER FREQUENCY:WEEKLY;?
     Route: 058
  8. TRIAMTERENE AND HYDROCHLOROTHIAZIDE [Concomitant]
     Active Substance: HYDROCHLOROTHIAZIDE\TRIAMTERENE
  9. LEVEMIR [Concomitant]
     Active Substance: INSULIN DETEMIR
  10. POTASSIUM [Concomitant]
     Active Substance: POTASSIUM
  11. VITAMIN D [Concomitant]
     Active Substance: CHOLECALCIFEROL
  12. VITAMIN B12 [Concomitant]
     Active Substance: CYANOCOBALAMIN

REACTIONS (9)
  - Alopecia [None]
  - Dysphagia [None]
  - Pain [None]
  - Headache [None]
  - Back pain [None]
  - Feeling abnormal [None]
  - Vision blurred [None]
  - Lethargy [None]
  - Confusional state [None]
